FAERS Safety Report 21555792 (Version 1)
Quarter: 2022Q4

REPORT INFORMATION
  Report Type: Spontaneous
  Country: FR (occurrence: FR)
  Receive Date: 20221104
  Receipt Date: 20221104
  Transmission Date: 20230113
  Serious: Yes (Life-Threatening)
  Sender: FDA-Public Use
  Company Number: None

PATIENT
  Age: 80 Year
  Sex: Female
  Weight: 81 kg

DRUGS (17)
  1. FUROSEMIDE [Interacting]
     Active Substance: FUROSEMIDE
     Indication: Hypertension
     Dosage: UNIT DOSE : 120 MG , FREQUENCY TIME : 1 DAY ,  THERAPY START DATE :  ASKU
     Route: 065
  2. RAMIPRIL [Interacting]
     Active Substance: RAMIPRIL
     Indication: Hypertension
     Dosage: UNIT DOSE : 2.5 MG , FREQUENCY TIME : 1 DAY ,  THERAPY START DATE :  ASKU
     Route: 065
     Dates: end: 20220721
  3. METFORMIN HYDROCHLORIDE [Concomitant]
     Active Substance: METFORMIN HYDROCHLORIDE
     Indication: Product used for unknown indication
     Dosage: UNIT DOSE :3000 MG  , FREQUENCY TIME : 1 DAY ,  THERAPY START DATE :  ASKU
     Dates: end: 20220721
  4. XARELTO [Concomitant]
     Active Substance: RIVAROXABAN
     Indication: Product used for unknown indication
     Dosage: UNIT DOSE AND STRENGTH : 20 MG , FREQUENCY TIME : 1 DAY ,  THERAPY START DATE :  ASKU
     Dates: end: 20220721
  5. LEVEMIR [Concomitant]
     Active Substance: INSULIN DETEMIR
     Indication: Product used for unknown indication
     Dosage: PENFILL STRENGTH :  100 U/ML, UNIT DOSE :  10 IU, FREQUENCY TIME : 1 DAY ,  THERAPY START DATE :  AS
     Dates: end: 20220721
  6. ECONAZOLE [Concomitant]
     Active Substance: ECONAZOLE
     Indication: Product used for unknown indication
     Dosage: THERAPY START DATE :  ASKU
     Dates: end: 20220721
  7. DEXERYL [Concomitant]
     Indication: Product used for unknown indication
     Dosage: CREAM IN A TUBE,  THERAPY START DATE :  ASKU
     Dates: end: 20220721
  8. AMLODIPINE [Concomitant]
     Active Substance: AMLODIPINE BESYLATE
     Indication: Product used for unknown indication
     Dosage: UNIT DOSE : 10MG , FREQUENCY TIME : 1 DAY ,  THERAPY START DATE :  ASKU
     Dates: end: 20220721
  9. BISOPROLOL [Concomitant]
     Active Substance: BISOPROLOL
     Indication: Product used for unknown indication
     Dosage: UNIT DOSE AND STRENGTH :  1.25 MG, FREQUENCY TIME : 1 DAY ,  THERAPY START DATE :  ASKU
     Dates: end: 20220721
  10. LANSOPRAZOLE [Concomitant]
     Active Substance: LANSOPRAZOLE
     Indication: Product used for unknown indication
     Dosage: UNIT DOSE : 15 MG , FREQUENCY TIME : 1 DAY ,  THERAPY START DATE :  ASKU
     Dates: end: 20220721
  11. KARDEGIC [Concomitant]
     Active Substance: ASPIRIN DL-LYSINE
     Indication: Product used for unknown indication
     Dosage: IN SACHET-DOSE, UNIT DOSE AND STRENGTH :  75 MG , FREQUENCY TIME : 1 DAY ,  THERAPY START DATE :  AS
     Dates: end: 20220721
  12. ACETAMINOPHEN [Concomitant]
     Active Substance: ACETAMINOPHEN
     Indication: Product used for unknown indication
     Dosage: UNIT DOSE : 3 GRAM , FREQUENCY TIME : 1 DAY ,  THERAPY START DATE :  ASKU
     Dates: end: 20220721
  13. FOLIC ACID [Concomitant]
     Active Substance: FOLIC ACID
     Indication: Product used for unknown indication
     Dosage: UNIT DOSE : 5 MG , FREQUENCY TIME : 1 DAY ,  THERAPY START DATE :  ASKU
     Dates: end: 20220721
  14. FERROUS FUMARATE [Concomitant]
     Active Substance: FERROUS FUMARATE
     Indication: Product used for unknown indication
     Dosage: STRENGTH : 66 MG , UNIT DOSE : 132 MG  , FREQUENCY TIME : 1 DAY ,  THERAPY START DATE :  ASKU
     Dates: end: 20220721
  15. LACTULOSE [Concomitant]
     Active Substance: LACTULOSE
     Indication: Product used for unknown indication
     Dosage: UNIT DOSE : 20 GRAM , FREQUENCY TIME : 1 DAY ,  THERAPY START DATE :  ASKU
     Dates: end: 20220721
  16. ATORVASTATIN [Concomitant]
     Active Substance: ATORVASTATIN
     Indication: Product used for unknown indication
     Dosage: UNIT DOSE : 40 MG , FREQUENCY TIME : 1 DAY ,  THERAPY START DATE :  ASKU
     Dates: end: 20220721
  17. CHOLECALCIFEROL [Concomitant]
     Active Substance: CHOLECALCIFEROL
     Indication: Product used for unknown indication
     Dosage: STRENGTH : 100,000 IU, UNIT DOSE : 1 DOSAGE FORM , FREQUENCY TIME : 1 CYCLICAL, THERAPY START DATE :
     Dates: end: 20220721

REACTIONS (3)
  - Hyperkalaemia [Recovered/Resolved]
  - Acute kidney injury [Recovering/Resolving]
  - Drug interaction [Recovering/Resolving]

NARRATIVE: CASE EVENT DATE: 20220721
